FAERS Safety Report 20776781 (Version 4)
Quarter: 2022Q2

REPORT INFORMATION
  Report Type: Report from Study
  Country: IT (occurrence: IT)
  Receive Date: 20220502
  Receipt Date: 20220623
  Transmission Date: 20220721
  Serious: Yes (Hospitalization, Other)
  Sender: FDA-Public Use
  Company Number: IT-PFM-2022-03893

PATIENT
  Age: 66 Year
  Sex: Female
  Weight: 71 kg

DRUGS (5)
  1. ENCORAFENIB [Suspect]
     Active Substance: ENCORAFENIB
     Indication: Colon cancer metastatic
     Dosage: 300 MG, DAILY
     Route: 048
     Dates: start: 20220412, end: 20220413
  2. ENCORAFENIB [Suspect]
     Active Substance: ENCORAFENIB
     Dosage: 300 MG, DAILY
     Route: 048
     Dates: start: 20220523
  3. CETUXIMAB [Suspect]
     Active Substance: CETUXIMAB
     Indication: Colon cancer metastatic
     Dosage: 680 MG, DAILY
     Route: 042
     Dates: start: 20220412
  4. APIXABAN [Concomitant]
     Active Substance: APIXABAN
     Indication: Factor V Leiden mutation
     Dosage: 2.5 MG, DAILY
     Route: 065
     Dates: start: 2015
  5. DOXYCYCLINE [Concomitant]
     Active Substance: DOXYCYCLINE
     Indication: Prophylaxis
     Dosage: 100 MG, DAILY
     Route: 065
     Dates: start: 20220412

REACTIONS (5)
  - Syncope [Recovered/Resolved]
  - Skull fractured base [Unknown]
  - Skull fracture [Unknown]
  - Fall [Recovered/Resolved]
  - Vomiting [Recovered/Resolved]

NARRATIVE: CASE EVENT DATE: 20220413
